FAERS Safety Report 7273564-0 (Version None)
Quarter: 2011Q1

REPORT INFORMATION
  Report Type: 
  Country: None (occurrence: None)
  Receive Date: 20110203
  Receipt Date: 20100820
  Transmission Date: 20110831
  Serious: No
  Sender: FDA-Public Use
  Company Number: US-ABBOTT-10P-163-0666334-00

PATIENT
  Sex: Female
  Weight: 56.75 kg

DRUGS (3)
  1. SYNTHROID [Suspect]
     Indication: HYPOTHYROIDISM
     Dosage: 88 MCG 4 DAYS A WEEK
     Dates: start: 19980101
  2. TIMOPTIC [Concomitant]
     Indication: GLAUCOMA
  3. SYNTHROID [Suspect]
     Indication: HYPOTHYROIDISM
     Dosage: 100 MCG 3 DAYS A WEEK
     Dates: start: 19980101

REACTIONS (1)
  - DYSPNOEA [None]
